FAERS Safety Report 11241521 (Version 1)
Quarter: 2015Q3

REPORT INFORMATION
  Report Type: Spontaneous
  Country: US (occurrence: US)
  Receive Date: 20150706
  Receipt Date: 20150706
  Transmission Date: 20151125
  Serious: No
  Sender: FDA-Public Use
  Company Number: US-DSJP-DSU-2014-115223

PATIENT
  Sex: Female

DRUGS (1)
  1. WELCHOL [Suspect]
     Active Substance: COLESEVELAM HYDROCHLORIDE
     Indication: GASTROINTESTINAL DISORDER
     Dosage: 625 MG (2 TABLETS IN AM AND 1 TABLET IN PM)
     Route: 048

REACTIONS (3)
  - Off label use [Unknown]
  - Drug administration error [Unknown]
  - No adverse event [Unknown]
